FAERS Safety Report 18240542 (Version 2)
Quarter: 2020Q4

REPORT INFORMATION
  Report Type: Report from Study
  Country: CA (occurrence: CA)
  Receive Date: 20200908
  Receipt Date: 20201002
  Transmission Date: 20210113
  Serious: Yes (Death)
  Sender: FDA-Public Use
  Company Number: CA-REGENERON PHARMACEUTICALS, INC.-2020-74288

PATIENT

DRUGS (1)
  1. EYLEA [Suspect]
     Active Substance: AFLIBERCEPT
     Indication: NEOVASCULAR AGE-RELATED MACULAR DEGENERATION
     Dosage: DOSE, FREQUENCY AND TOTAL NUMBER OF DOSES UNKNOWN
     Dates: start: 20160512

REACTIONS (1)
  - Death [Fatal]
